FAERS Safety Report 7928334-4 (Version None)
Quarter: 2011Q4

REPORT INFORMATION
  Report Type: 
  Country: None (occurrence: None)
  Receive Date: 20111118
  Receipt Date: 20111109
  Transmission Date: 20120403
  Serious: Yes (Hospitalization, Other)
  Sender: FDA-Public Use
  Company Number: US-BAYER-2011-038751

PATIENT
  Age: 32 Year
  Sex: Female

DRUGS (7)
  1. YASMIN [Suspect]
     Indication: CONTRACEPTION
     Dosage: UNK
     Route: 048
     Dates: start: 20020801, end: 20080801
  2. IBUPROFEN [Concomitant]
     Indication: ABDOMINAL PAIN
     Dosage: UNK UNK, PRN
     Route: 048
     Dates: start: 20070101, end: 20080101
  3. YAZ [Suspect]
     Indication: MENSTRUAL CYCLE MANAGEMENT
  4. LEVSIN [Concomitant]
     Indication: ABDOMINAL PAIN
     Dosage: 2 DF, QD
     Route: 048
     Dates: start: 20070501, end: 20080101
  5. YASMIN [Suspect]
     Indication: MENSTRUAL CYCLE MANAGEMENT
  6. YAZ [Suspect]
     Indication: CONTRACEPTION
     Dosage: UNK
     Route: 048
     Dates: start: 20020801, end: 20080801
  7. PRILOSEC [Concomitant]
     Indication: ABDOMINAL PAIN
     Dosage: UNK UNK, PRN
     Route: 048
     Dates: start: 20070501, end: 20080101

REACTIONS (3)
  - CHOLECYSTITIS ACUTE [None]
  - INJURY [None]
  - PAIN [None]
